FAERS Safety Report 21921559 (Version 4)
Quarter: 2024Q1

REPORT INFORMATION
  Report Type: Spontaneous
  Country: US (occurrence: US)
  Receive Date: 20230127
  Receipt Date: 20240105
  Transmission Date: 20240409
  Serious: No
  Sender: FDA-Public Use
  Company Number: US-PFIZER INC-PV202300017060

PATIENT
  Age: 65 Year
  Sex: Female

DRUGS (7)
  1. IBRANCE [Suspect]
     Active Substance: PALBOCICLIB
     Indication: Neoplasm malignant
     Dosage: 125 MG
  2. IBRANCE [Suspect]
     Active Substance: PALBOCICLIB
     Indication: Breast cancer metastatic
     Dosage: 100 MG, CYCLIC (TAKE ON DAY 1-21 OUT OF A 28 DAYS)
     Route: 048
     Dates: start: 20221028
  3. IBRANCE [Suspect]
     Active Substance: PALBOCICLIB
     Dosage: 100 MG, CYCLIC TAKE 1 TABLET BY MOUTH DAILY TAKE ON DAYS 1 -21 OUT OF A 28 DAY CYCLE
     Route: 048
     Dates: start: 20230530
  4. LOMOTIL [Concomitant]
     Active Substance: ATROPINE SULFATE\DIPHENOXYLATE HYDROCHLORIDE
     Indication: Diarrhoea
     Dosage: 1 DF, 4X/DAY
     Route: 048
     Dates: start: 20220701
  5. NEURONTIN [Concomitant]
     Active Substance: GABAPENTIN
     Indication: Neuralgia
     Dosage: 2 DF (2 TABLETS AT NIGHT)
     Dates: start: 20220902
  6. NEURONTIN [Concomitant]
     Active Substance: GABAPENTIN
     Indication: Angiopathy
     Dosage: 2 DF (2 TABLETS AT NIGHT)
     Dates: start: 20231121
  7. EFFEXOR XR [Concomitant]
     Active Substance: VENLAFAXINE HYDROCHLORIDE
     Indication: Menopausal symptoms
     Dosage: 150 MG, DAILY (TAKE 1 CAPSULE BY MOUTH DAILY (WITH BREAKFAST)
     Route: 048
     Dates: start: 20220121

REACTIONS (1)
  - Illness [Unknown]
